FAERS Safety Report 6393583-6 (Version None)
Quarter: 2009Q4

REPORT INFORMATION
  Report Type: 
  Country: None (occurrence: None)
  Receive Date: 20091008
  Receipt Date: 20090929
  Transmission Date: 20100525
  Serious: Yes (Death)
  Sender: FDA-Public Use
  Company Number: JP-NAPPMUNDI-MAG-2009-0001070

PATIENT

DRUGS (1)
  1. OXYCODONE HCL [Suspect]
     Indication: CANCER PAIN
     Dosage: UNK
     Route: 042
     Dates: start: 20090928, end: 20090929

REACTIONS (1)
  - CARDIO-RESPIRATORY ARREST [None]
